FAERS Safety Report 7643112-1 (Version None)
Quarter: 2011Q3

REPORT INFORMATION
  Report Type: 
  Country: None (occurrence: None)
  Receive Date: 20110729
  Receipt Date: 20110721
  Transmission Date: 20111222
  Serious: Yes (Other)
  Sender: FDA-Public Use
  Company Number: SE-AMGEN-SWESP2011036232

PATIENT
  Age: 50 Year
  Sex: Male

DRUGS (5)
  1. ENBREL [Suspect]
     Indication: ANKYLOSING SPONDYLITIS
     Dosage: 50 MG, WEEKLY
     Route: 058
     Dates: start: 20100211
  2. PREDNISOLONE [Suspect]
     Indication: ANKYLOSING SPONDYLITIS
     Dosage: 5 MG, 4X/DAY
     Route: 048
     Dates: start: 20110401, end: 20110403
  3. METHOTREXATE [Concomitant]
     Dosage: 2.5 MG, 4 TIMES/WEEK
     Dates: start: 20110330
  4. FOLACIN                            /00198401/ [Concomitant]
     Dosage: 5 MG, 2X/WEEK
     Dates: start: 20110330
  5. NASONEX [Concomitant]
     Dosage: 50 UG, 1X1 IN EVERY NOSTRIL
     Route: 045
     Dates: start: 20101126

REACTIONS (1)
  - MUSCLE RUPTURE [None]
